FAERS Safety Report 7002561-5 (Version None)
Quarter: 2010Q3

REPORT INFORMATION
  Report Type: 
  Country: None (occurrence: None)
  Receive Date: 20100920
  Receipt Date: 20091104
  Transmission Date: 20110219
  Serious: No
  Sender: FDA-Public Use
  Company Number: US-ASTRAZENECA-2009SE24350

PATIENT
  Sex: Female

DRUGS (3)
  1. SEROQUEL [Suspect]
     Dosage: 25 MG
     Route: 048
  2. LEXAPRO [Concomitant]
  3. OXICONTIN [Concomitant]

REACTIONS (1)
  - FEELING ABNORMAL [None]
